FAERS Safety Report 24987023 (Version 2)
Quarter: 2025Q2

REPORT INFORMATION
  Report Type: Spontaneous
  Country: US (occurrence: US)
  Receive Date: 20250219
  Receipt Date: 20250411
  Transmission Date: 20250717
  Serious: Yes (Other)
  Sender: ELI LILLY AND CO
  Company Number: US-ELI_LILLY_AND_COMPANY-US202502009257

PATIENT
  Age: 70 Year
  Sex: Male

DRUGS (7)
  1. HUMULIN R U-500 [Suspect]
     Active Substance: INSULIN HUMAN
     Indication: Product used for unknown indication
     Route: 065
  2. HUMULIN R U-500 [Suspect]
     Active Substance: INSULIN HUMAN
     Indication: Product used for unknown indication
     Route: 065
  3. HUMULIN R U-500 [Suspect]
     Active Substance: INSULIN HUMAN
     Route: 065
  4. HUMULIN R U-500 [Suspect]
     Active Substance: INSULIN HUMAN
     Route: 065
  5. HUMULIN R U-500 [Suspect]
     Active Substance: INSULIN HUMAN
     Route: 065
  6. HUMULIN R U-500 [Suspect]
     Active Substance: INSULIN HUMAN
     Route: 065
  7. HUMULIN R U-500 [Suspect]
     Active Substance: INSULIN HUMAN
     Route: 065

REACTIONS (9)
  - Cerebrovascular accident [Unknown]
  - Mobility decreased [Unknown]
  - Incorrect dose administered [Unknown]
  - Injection site bruising [Unknown]
  - Memory impairment [Unknown]
  - Visual impairment [Unknown]
  - Scar [Unknown]
  - Headache [Unknown]
  - Injection site erythema [Unknown]
